FAERS Safety Report 5969385-9 (Version None)
Quarter: 2008Q4

REPORT INFORMATION
  Report Type: 
  Country: None (occurrence: None)
  Receive Date: 20081126
  Receipt Date: 20081124
  Transmission Date: 20090506
  Serious: Yes (Other)
  Sender: FDA-Public Use
  Company Number: US-WATSON-2008-06948

PATIENT
  Sex: Female

DRUGS (2)
  1. OXYTROL [Suspect]
     Indication: POLLAKIURIA
     Dosage: USED FOR LESS THAN ONE MONTH
     Route: 062
     Dates: start: 20060101, end: 20060101
  2. OXYTROL [Suspect]
     Indication: INCONTINENCE

REACTIONS (4)
  - FALL [None]
  - NIGHT BLINDNESS [None]
  - VISION BLURRED [None]
  - VISUAL ACUITY REDUCED [None]
